FAERS Safety Report 4879288-9 (Version None)
Quarter: 2006Q1

REPORT INFORMATION
  Report Type: 
  Country: None (occurrence: None)
  Receive Date: 20060112
  Receipt Date: 20051220
  Transmission Date: 20060701
  Serious: Yes (Hospitalization, Disabling, Other)
  Sender: FDA-Public Use
  Company Number: US-MERCK-0512USA03293

PATIENT
  Age: 60 Year
  Sex: Male
  Weight: 102 kg

DRUGS (9)
  1. PLAVIX [Concomitant]
     Route: 065
  2. VIOXX [Suspect]
     Indication: PAIN IN EXTREMITY
     Route: 048
     Dates: start: 20000101, end: 20040501
  3. VIOXX [Suspect]
     Route: 048
     Dates: start: 20000101, end: 20040501
  4. VIOXX [Suspect]
     Indication: BACK PAIN
     Route: 048
     Dates: start: 20000101, end: 20040501
  5. VIOXX [Suspect]
     Route: 048
     Dates: start: 20000101, end: 20040501
  6. [THERAPY UNSPECIFIED] [Concomitant]
     Route: 065
  7. ACTOS [Concomitant]
     Route: 065
  8. LIPITOR [Concomitant]
     Route: 065
  9. GLUCOPHAGE [Concomitant]
     Route: 065

REACTIONS (4)
  - ADVERSE EVENT [None]
  - CATHETERISATION CARDIAC [None]
  - CEREBROVASCULAR ACCIDENT [None]
  - ROTATOR CUFF SYNDROME [None]
